FAERS Safety Report 24712091 (Version 2)
Quarter: 2024Q4

REPORT INFORMATION
  Report Type: Report from Study
  Country: US (occurrence: US)
  Receive Date: 20241209
  Receipt Date: 20241217
  Transmission Date: 20250114
  Serious: Yes (Other)
  Sender: ROCHE
  Company Number: US-ROCHE-10000147753

PATIENT
  Age: 55 Year
  Sex: Female
  Weight: 57.15 kg

DRUGS (7)
  1. RITUXAN [Suspect]
     Active Substance: RITUXIMAB
     Indication: Chronic lymphocytic leukaemia
     Dosage: THERAPY START DATE: -JUN-2018?THERAPY END DATE: -JUN-2018
     Route: 065
  2. FLUDARABINE [Suspect]
     Active Substance: FLUDARABINE PHOSPHATE
     Indication: Chronic lymphocytic leukaemia
     Dosage: THERAPY START DATE: -JUN-2018?THERAPY END DATE: 20-JUN-2018
     Route: 065
  3. CYCLOPHOSPHAMIDE [Suspect]
     Active Substance: CYCLOPHOSPHAMIDE
     Indication: Chronic lymphocytic leukaemia
     Dosage: THERAPY START DATE: -JUN-2018?THERAPY END DATE: -JUN-2018
     Route: 065
  4. ELTROMBOPAG [Concomitant]
     Active Substance: ELTROMBOPAG
     Dates: start: 2023
  5. DEXAMETHASONE [Concomitant]
     Active Substance: DEXAMETHASONE
     Dates: start: 202410
  6. RUXIENCE [Concomitant]
     Active Substance: RITUXIMAB-PVVR
     Dates: start: 202101, end: 2021
  7. PREDNISONE [Concomitant]
     Active Substance: PREDNISONE

REACTIONS (23)
  - Haemoglobin decreased [Not Recovered/Not Resolved]
  - Aplastic anaemia [Not Recovered/Not Resolved]
  - Neutrophil count decreased [Not Recovered/Not Resolved]
  - Platelet count decreased [Unknown]
  - Drug ineffective [Unknown]
  - Hepatitis B core antibody positive [Unknown]
  - Iron overload [Not Recovered/Not Resolved]
  - Neutrophil count decreased [Unknown]
  - Myelosuppression [Not Recovered/Not Resolved]
  - Lymphocyte count decreased [Not Recovered/Not Resolved]
  - Disseminated intravascular coagulation [Unknown]
  - Ill-defined disorder [Not Recovered/Not Resolved]
  - Urticaria [Unknown]
  - Dyspnoea [Unknown]
  - Pruritus [Unknown]
  - Swollen tongue [Unknown]
  - Bone marrow failure [Unknown]
  - Vision blurred [Unknown]
  - Psychiatric symptom [Unknown]
  - Urinary tract disorder [Unknown]
  - Tremor [Unknown]
  - Fear [Unknown]
  - Fatigue [Unknown]

NARRATIVE: CASE EVENT DATE: 20180101
